FAERS Safety Report 10746116 (Version 4)
Quarter: 2018Q1

REPORT INFORMATION
  Report Type: Spontaneous
  Country: US (occurrence: US)
  Receive Date: 20150128
  Receipt Date: 20180316
  Transmission Date: 20180508
  Serious: Yes (Hospitalization, Other)
  Sender: FDA-Public Use
  Company Number: US-ELI_LILLY_AND_COMPANY-US201501006377

PATIENT
  Age: 43 Year
  Sex: Male
  Weight: 92.97 kg

DRUGS (2)
  1. AXIRON [Suspect]
     Active Substance: TESTOSTERONE
     Indication: BLOOD TESTOSTERONE DECREASED
     Dosage: 60 MG, QD
     Route: 061
     Dates: start: 20110815, end: 20111213
  2. DILANTIN [Concomitant]
     Active Substance: PHENYTOIN
     Indication: SEIZURE
     Dosage: UNK, QD
     Route: 048

REACTIONS (6)
  - Pulmonary embolism [Recovered/Resolved with Sequelae]
  - Protein S decreased [Unknown]
  - Fatigue [Unknown]
  - Deep vein thrombosis [Unknown]
  - Malaise [Unknown]
  - Musculoskeletal disorder [Not Recovered/Not Resolved]

NARRATIVE: CASE EVENT DATE: 20111212
